FAERS Safety Report 8538107-X (Version None)
Quarter: 2012Q3

REPORT INFORMATION
  Report Type: 
  Country: None (occurrence: None)
  Receive Date: 20120725
  Receipt Date: 20120709
  Transmission Date: 20120928
  Serious: Yes (Congenital Anomaly)
  Sender: FDA-Public Use
  Company Number: US-ELI_LILLY_AND_COMPANY-US201207002518

PATIENT

DRUGS (1)
  1. BYETTA [Suspect]

REACTIONS (2)
  - DANDY-WALKER SYNDROME [None]
  - FOETAL EXPOSURE DURING PREGNANCY [None]
